FAERS Safety Report 8392317-3 (Version None)
Quarter: 2012Q2

REPORT INFORMATION
  Report Type: 
  Country: None (occurrence: None)
  Receive Date: 20120529
  Receipt Date: 20120521
  Transmission Date: 20120825
  Serious: Yes (Death, Hospitalization, Other)
  Sender: FDA-Public Use
  Company Number: US-ELI_LILLY_AND_COMPANY-US201204001919

PATIENT
  Sex: Female

DRUGS (3)
  1. ADCIRCA [Suspect]
     Indication: PULMONARY ARTERIAL HYPERTENSION
     Dosage: 40 MG, UNK
     Dates: start: 20120217, end: 20120402
  2. DIGOXIN [Concomitant]
     Dosage: 0.125 MG, QD
  3. METOPROLOL TARTRATE [Concomitant]
     Dosage: 25 MG, BID

REACTIONS (6)
  - TOOTH ABSCESS [None]
  - ATRIAL FIBRILLATION [None]
  - RENAL FAILURE [None]
  - UROSEPSIS [None]
  - INFECTIVE THROMBOSIS [None]
  - SEPSIS [None]
